FAERS Safety Report 19883821 (Version 1)
Quarter: 2021Q3

REPORT INFORMATION
  Report Type: Spontaneous
  Country: US (occurrence: US)
  Receive Date: 20210919
  Receipt Date: 20210919
  Transmission Date: 20211014
  Serious: Yes (Disabling, Other)
  Sender: FDA-Public Use
  Company Number: None

PATIENT
  Age: 28 Year
  Sex: Female
  Weight: 65.25 kg

DRUGS (2)
  1. APH HYDROQUINONE CREAM [Suspect]
     Active Substance: HYDROQUINONE
     Indication: CHLOASMA
     Dosage: ?          OTHER STRENGTH:NONE PROVIDED;?
     Route: 061
     Dates: start: 20210901, end: 20210916
  2. APC ALL PURPOSE 5% CYSTEAMINE [Suspect]
     Active Substance: CYSTEAMINE

REACTIONS (9)
  - Pharyngeal swelling [None]
  - Rash [None]
  - Anaphylactic reaction [None]
  - Physical product label issue [None]
  - Hypersensitivity [None]
  - Prescription drug used without a prescription [None]
  - Urticaria [None]
  - Product label issue [None]
  - Product deposit [None]

NARRATIVE: CASE EVENT DATE: 20210916
